FAERS Safety Report 7219711-8 (Version None)
Quarter: 2011Q1

REPORT INFORMATION
  Report Type: 
  Country: None (occurrence: None)
  Receive Date: 20110103
  Receipt Date: 20101220
  Transmission Date: 20110831
  Serious: Yes (Hospitalization)
  Sender: FDA-Public Use
  Company Number: 784919

PATIENT
  Age: 85 Year
  Sex: Male

DRUGS (10)
  1. FENTANYL CITRATE [Suspect]
     Indication: MUSCULOSKELETAL CHEST PAIN
     Dosage: 75 MCG/HR, INTRAVENOUS DRIP, AFTER 2 DAYS: 25 MCG/HR, INTRAVENOUS DRIP
     Route: 041
  2. PREVACID [Concomitant]
  3. SENNA [Concomitant]
  4. COLACE [Concomitant]
  5. DILTIAZEM HYDROCHLORIDE [Suspect]
     Indication: SUPRAVENTRICULAR TACHYCARDIA
  6. OXYCODONE [Concomitant]
  7. VANCOMYCIN HYDROCHLORIDE [Concomitant]
  8. RANITIDINE [Concomitant]
  9. PIPERACILLIN AND TAZOBACTAM [Concomitant]
  10. FLOMAX [Concomitant]

REACTIONS (4)
  - AGITATION [None]
  - DRUG INTERACTION [None]
  - CONDITION AGGRAVATED [None]
  - DELIRIUM [None]
